FAERS Safety Report 6866014-7 (Version None)
Quarter: 2010Q3

REPORT INFORMATION
  Report Type: 
  Country: None (occurrence: None)
  Receive Date: 20100719
  Receipt Date: 20100702
  Transmission Date: 20110219
  Serious: Yes (Hospitalization, Disabling)
  Sender: FDA-Public Use
  Company Number: 2009000780

PATIENT
  Age: 61 Year
  Sex: Male
  Weight: 75 kg

DRUGS (17)
  1. ERLOTINIB HYDROCHLORIDE [Suspect]
     Indication: PANCREATIC CARCINOMA METASTATIC
     Dosage: 100 MG, QD, ORAL
     Route: 048
     Dates: start: 20090225, end: 20090518
  2. GEMCITABINE [Suspect]
     Indication: PANCREATIC CARCINOMA METASTATIC
     Dosage: 1000 MG/M2, Q1W, INTRAVENOUS
     Route: 042
     Dates: start: 20090225
  3. MORPHINE SULFATE INJ [Suspect]
     Indication: PRODUCT USED FOR UNKNOWN INDICATION
     Dosage: 20 MG
     Dates: start: 20090221
  4. GLICLAZIDE (GLICLAZIDE) [Concomitant]
  5. METFORMIN HCL [Concomitant]
  6. ENOXAPARIN SODIUM [Concomitant]
  7. RAMIPRIL [Concomitant]
  8. DICLOFENAC SODIUM [Concomitant]
  9. PANTOPRAZOLE SODIUM [Concomitant]
  10. FENTANYL-100 [Concomitant]
  11. POTASSIUM CHLORIDE [Concomitant]
  12. SPIRONOLACTONE [Concomitant]
  13. METHYLPREDNISOLONE [Concomitant]
  14. HYDROCHLOROTHIAZIDE [Concomitant]
  15. LOPERAMIDE HYDROCHLORIDE [Concomitant]
  16. ALUMINUM HYDROXIDE AND MAGNESIUM TRISILICATE [Concomitant]
  17. PANCREATIN TRIPLE STRENGTH CAP [Concomitant]

REACTIONS (6)
  - ANAEMIA [None]
  - BLOOD POTASSIUM DECREASED [None]
  - INAPPROPRIATE SCHEDULE OF DRUG ADMINISTRATION [None]
  - MALIGNANT NEOPLASM PROGRESSION [None]
  - OVERDOSE [None]
  - PANCREATIC CARCINOMA [None]
